FAERS Safety Report 7238317 (Version 2)
Quarter: 2012Q4

REPORT INFORMATION
  Report Type: Report from Study
  Country: KR (occurrence: KR)
  Receive Date: 20100106
  Receipt Date: 20121011
  Transmission Date: 20130627
  Serious: Yes (Hospitalization, Other)
  Sender: FDA-Public Use
  Company Number: PHHO2009KR15704

PATIENT
  Age: 48 Year
  Sex: Male

DRUGS (3)
  1. CERTICAN [Suspect]
     Indication: RENAL TRANSPLANT
     Dosage: 0.75 mg, BID
     Route: 048
     Dates: start: 20091001, end: 20091216
  2. NEORAL [Suspect]
     Indication: RENAL TRANSPLANT
     Dosage: UNK
     Dates: start: 20091211, end: 20091216
  3. STEROIDS NOS [Concomitant]

REACTIONS (4)
  - Kidney transplant rejection [Recovering/Resolving]
  - Blood creatinine increased [Recovering/Resolving]
  - Oedema peripheral [Recovering/Resolving]
  - Face oedema [Recovering/Resolving]
